FAERS Safety Report 25811431 (Version 2)
Quarter: 2025Q3

REPORT INFORMATION
  Report Type: Spontaneous
  Country: BR (occurrence: BR)
  Receive Date: 20250917
  Receipt Date: 20250926
  Transmission Date: 20251021
  Serious: Yes (Other)
  Sender: CELLTRION
  Company Number: BR-CELLTRION INC.-2025BR032943

PATIENT

DRUGS (1)
  1. INFLIXIMAB [Suspect]
     Active Substance: INFLIXIMAB
     Indication: Psoriasis
     Route: 042
     Dates: start: 20210914

REACTIONS (4)
  - Dementia Alzheimer^s type [Unknown]
  - Memory impairment [Unknown]
  - Bradykinesia [Unknown]
  - Loss of personal independence in daily activities [Unknown]
